FAERS Safety Report 14670840 (Version 1)
Quarter: 2018Q1

REPORT INFORMATION
  Report Type: Spontaneous
  Country: US (occurrence: US)
  Receive Date: 20180322
  Receipt Date: 20180322
  Transmission Date: 20180509
  Serious: Yes (Other)
  Sender: FDA-Public Use
  Company Number: US-PFIZER INC-2018116431

PATIENT
  Age: 59 Year
  Sex: Female

DRUGS (1)
  1. XELJANZ [Suspect]
     Active Substance: TOFACITINIB CITRATE
     Indication: CHRONIC KIDNEY DISEASE
     Dosage: 5 MG, 2X/DAY

REACTIONS (5)
  - Tuberculosis [Unknown]
  - Stomatitis [Unknown]
  - Psoriasis [Unknown]
  - Dermatitis [Unknown]
  - Drug ineffective for unapproved indication [Unknown]
